FAERS Safety Report 4411767-0 (Version None)
Quarter: 2004Q3

REPORT INFORMATION
  Report Type: 
  Country: None (occurrence: None)
  Receive Date: 20040728
  Receipt Date: 20040714
  Transmission Date: 20050211
  Serious: Yes (Hospitalization)
  Sender: FDA-Public Use
  Company Number: USA040362589

PATIENT
  Age: 72 Year
  Sex: Male

DRUGS (10)
  1. HUMATROPE [Suspect]
     Dosage: UNK
     Route: 065
  2. CORTEF [Concomitant]
  3. PREVACID [Concomitant]
  4. DIOVAN [Concomitant]
  5. LEVOXYL [Concomitant]
  6. IRON [Concomitant]
  7. LIPITOR [Concomitant]
  8. TESTOSTERONE [Concomitant]
  9. MULTI-VITAMINS [Concomitant]
  10. VITAMIN C [Concomitant]

REACTIONS (4)
  - HEART VALVE REPLACEMENT [None]
  - LUNG DISORDER [None]
  - MEDICAL DEVICE COMPLICATION [None]
  - PHARMACEUTICAL PRODUCT COMPLAINT [None]
